FAERS Safety Report 7874445-1 (Version None)
Quarter: 2011Q4

REPORT INFORMATION
  Report Type: 
  Country: None (occurrence: None)
  Receive Date: 20111030
  Receipt Date: 20110520
  Transmission Date: 20120403
  Serious: No
  Sender: FDA-Public Use
  Company Number: US-AMGEN-USASP2011026309

PATIENT
  Sex: Male

DRUGS (3)
  1. METOPROLOL [Concomitant]
  2. ENBREL [Suspect]
     Indication: PSORIASIS
     Dosage: 50 MG, QWK
     Dates: start: 20050101, end: 20110101
  3. BENICAR [Concomitant]

REACTIONS (2)
  - BLOOD GLUCOSE INCREASED [None]
  - PSORIASIS [None]
